FAERS Safety Report 11923885 (Version 3)
Quarter: 2016Q1

REPORT INFORMATION
  Report Type: Report from Study
  Country: DE (occurrence: DE)
  Receive Date: 20160118
  Receipt Date: 20160210
  Transmission Date: 20160526
  Serious: Yes (Death, Life-Threatening, Hospitalization, Other)
  Sender: FDA-Public Use
  Company Number: DE-TAKEDA-2016MPI000213

PATIENT
  Age: 69 Year
  Sex: Female
  Weight: 65 kg

DRUGS (9)
  1. DEXAMETHASONE. [Suspect]
     Active Substance: DEXAMETHASONE
     Indication: PLASMA CELL MYELOMA
     Dosage: 20 MG, UNK
     Route: 048
     Dates: start: 20150721, end: 20160109
  2. CLOPIDOGREL                        /01220704/ [Concomitant]
     Indication: ISCHAEMIC STROKE
     Dosage: 75 MG, QD
     Route: 065
     Dates: start: 2015
  3. VELCADE [Suspect]
     Active Substance: BORTEZOMIB
     Indication: PLASMA CELL MYELOMA
     Dosage: 2.3 MG, UNK
     Route: 058
     Dates: start: 20150721, end: 20160108
  4. VALTREX [Concomitant]
     Active Substance: VALACYCLOVIR HYDROCHLORIDE
     Indication: ANTIVIRAL PROPHYLAXIS
     Dosage: 500 MG, BID
     Route: 048
     Dates: start: 20150721
  5. KALINOR-RETARD P [Concomitant]
     Indication: ELECTROLYTE SUBSTITUTION THERAPY
     Dosage: 1200 MG, TID
     Route: 048
     Dates: start: 2015
  6. DARATUMUMAB [Suspect]
     Active Substance: DARATUMUMAB
     Indication: PLASMA CELL MYELOMA
     Dosage: 963.78 MG, QD
     Route: 042
     Dates: start: 20150721, end: 20160105
  7. COTRIM [Concomitant]
     Active Substance: SULFAMETHOXAZOLE\TRIMETHOPRIM
     Indication: INFECTION PROPHYLAXIS
     Dosage: 960 MG, TID
     Route: 048
     Dates: start: 20150721
  8. PANTOPRAZOL [Concomitant]
     Active Substance: PANTOPRAZOLE SODIUM
     Indication: GASTROINTESTINAL DISORDER THERAPY
     Dosage: 40 MG, QD
     Route: 048
     Dates: start: 2015
  9. VIGANTOLETTEN [Concomitant]
     Active Substance: CHOLECALCIFEROL
     Indication: OSTEOPOROSIS PROPHYLAXIS
     Dosage: 1000 IU, UNK
     Route: 048
     Dates: start: 2015

REACTIONS (1)
  - Ischaemic stroke [Fatal]

NARRATIVE: CASE EVENT DATE: 20160111
